FAERS Safety Report 21439796 (Version 1)
Quarter: 2022Q4

REPORT INFORMATION
  Report Type: Spontaneous
  Country: CN (occurrence: CN)
  Receive Date: 20221011
  Receipt Date: 20221011
  Transmission Date: 20230112
  Serious: Yes (Hospitalization, Other)
  Sender: FDA-Public Use
  Company Number: CN-BAYER-2022A139067

PATIENT
  Age: 54 Year
  Sex: Female
  Weight: 61 kg

DRUGS (2)
  1. STIVARGA [Suspect]
     Active Substance: REGORAFENIB
     Indication: Hepatocellular carcinoma
     Dosage: 40 MG, BID
     Route: 048
     Dates: start: 20220705, end: 202207
  2. STIVARGA [Suspect]
     Active Substance: REGORAFENIB
     Indication: Hepatocellular carcinoma
     Dosage: 40 MG, BID
     Route: 048
     Dates: start: 202207, end: 20220826

REACTIONS (12)
  - Diarrhoea [Recovering/Resolving]
  - Palmar-plantar erythrodysaesthesia syndrome [Recovering/Resolving]
  - Urinary tract infection [Recovering/Resolving]
  - Pneumonia [Recovering/Resolving]
  - Hepatocellular carcinoma [None]
  - Gastroenteritis [Recovering/Resolving]
  - Vomiting [Recovering/Resolving]
  - Jaundice [None]
  - Pyrexia [Recovering/Resolving]
  - Urinary retention [Recovering/Resolving]
  - Pyrexia [Recovering/Resolving]
  - Off label use [None]

NARRATIVE: CASE EVENT DATE: 20220701
